FAERS Safety Report 6852272-1 (Version None)
Quarter: 2010Q3

REPORT INFORMATION
  Report Type: 
  Country: None (occurrence: None)
  Receive Date: 20100717
  Receipt Date: 20071107
  Transmission Date: 20110219
  Serious: No
  Sender: FDA-Public Use
  Company Number: US-PFIZER INC-2007096417

PATIENT
  Sex: Female
  Weight: 52.272 kg

DRUGS (3)
  1. CHANTIX [Suspect]
     Indication: SMOKING CESSATION THERAPY
     Dates: start: 20071025
  2. XANAX [Concomitant]
  3. TRILEPTAL [Concomitant]

REACTIONS (2)
  - DIZZINESS [None]
  - HEADACHE [None]
